FAERS Safety Report 6264996-8 (Version None)
Quarter: 2009Q3

REPORT INFORMATION
  Report Type: 
  Country: None (occurrence: None)
  Receive Date: 20090709
  Receipt Date: 20090709
  Transmission Date: 20100115
  Serious: No
  Sender: FDA-Public Use
  Company Number: None

PATIENT
  Age: 60 Year
  Sex: Female
  Weight: 68.9467 kg

DRUGS (1)
  1. SAVELLA [Suspect]
     Indication: FIBROMYALGIA
     Dosage: STARTER PACKET 50MG/2XDAY 25ML/DAY AM PM ORAL
     Route: 048
     Dates: start: 20090513, end: 20090601

REACTIONS (21)
  - AGGRESSION [None]
  - ARTHRALGIA [None]
  - CHROMATURIA [None]
  - CONTUSION [None]
  - DEPRESSION [None]
  - DIZZINESS [None]
  - ECZEMA [None]
  - ERYTHEMA [None]
  - HEADACHE [None]
  - HYPERHIDROSIS [None]
  - HYPERTENSION [None]
  - MYALGIA [None]
  - NAUSEA [None]
  - PRURITUS [None]
  - PYREXIA [None]
  - SOMNOLENCE [None]
  - SUICIDAL IDEATION [None]
  - SWELLING [None]
  - SWELLING FACE [None]
  - URTICARIA [None]
  - VISION BLURRED [None]
